FAERS Safety Report 20438090 (Version 1)
Quarter: 2022Q1

REPORT INFORMATION
  Report Type: Spontaneous
  Country: CA (occurrence: CA)
  Receive Date: 20220207
  Receipt Date: 20220207
  Transmission Date: 20220424
  Serious: Yes (Hospitalization)
  Sender: FDA-Public Use
  Company Number: CA-Taiho Oncology Inc-EU-2022-00278

PATIENT
  Age: 66 Year
  Sex: Female
  Weight: 64 kg

DRUGS (7)
  1. LONSURF [Suspect]
     Active Substance: TIPIRACIL HYDROCHLORIDE\TRIFLURIDINE
     Indication: Colorectal cancer metastatic
     Dosage: CYCLE UNKNOWN
     Route: 048
  2. DILAUDID [Concomitant]
     Active Substance: HYDROMORPHONE HYDROCHLORIDE
     Dosage: LIQUID INTRAMUSCULAR
     Route: 030
  3. OLANZAPINE [Concomitant]
     Active Substance: OLANZAPINE
  4. OXAZEPAM [Concomitant]
     Active Substance: OXAZEPAM
  5. PANTOPRAZOLE [Concomitant]
     Active Substance: PANTOPRAZOLE
     Dosage: POWDER FOR SOLUTION
     Route: 042
  6. PROCHLORPERAZINE [Concomitant]
     Active Substance: PROCHLORPERAZINE
  7. RIVAROXABAN [Concomitant]
     Active Substance: RIVAROXABAN
     Dosage: FILM COATED TABLET

REACTIONS (3)
  - Dysarthria [Recovered/Resolved]
  - Anaemia [Recovered/Resolved]
  - Neutropenia [Recovered/Resolved]
